FAERS Safety Report 10888787 (Version 1)
Quarter: 2015Q1

REPORT INFORMATION
  Report Type: Other
  Country: US (occurrence: US)
  Receive Date: 20150305
  Receipt Date: 20150305
  Transmission Date: 20150721
  Serious: Yes (Hospitalization)
  Sender: FDA-Public Use
  Company Number: US-ACORDA-ACO_109324_2015

PATIENT
  Age: 31 Year
  Sex: Female
  Weight: 54.42 kg

DRUGS (2)
  1. AMPYRA [Suspect]
     Active Substance: DALFAMPRIDINE
     Indication: GAIT DISTURBANCE
     Dosage: 10 MG, BID
     Dates: start: 201406, end: 20150209
  2. GILENYA [Concomitant]
     Active Substance: FINGOLIMOD HYDROCHLORIDE
     Indication: PRODUCT USED FOR UNKNOWN INDICATION
     Dosage: 0.5 MG, QD
     Route: 065
     Dates: start: 201305

REACTIONS (2)
  - Hospitalisation [Recovering/Resolving]
  - Drug ineffective [Unknown]

NARRATIVE: CASE EVENT DATE: 20150207
